FAERS Safety Report 5472533-0 (Version None)
Quarter: 2007Q3

REPORT INFORMATION
  Report Type: 
  Country: None (occurrence: None)
  Receive Date: 20070928
  Receipt Date: 20070913
  Transmission Date: 20080115
  Serious: Yes (Other)
  Sender: FDA-Public Use
  Company Number: S07-CAN-05150-01

PATIENT
  Age: 18 Year
  Sex: Female

DRUGS (1)
  1. ESCITALOPRAM [Suspect]
     Dosage: 10 MG QD PO
     Route: 048

REACTIONS (7)
  - CRYING [None]
  - DRUG WITHDRAWAL SYNDROME [None]
  - FEAR [None]
  - HALLUCINATION [None]
  - NERVOUSNESS [None]
  - NIGHTMARE [None]
  - SUICIDAL BEHAVIOUR [None]
